FAERS Safety Report 18515677 (Version 2)
Quarter: 2022Q1

REPORT INFORMATION
  Report Type: Spontaneous
  Country: US (occurrence: US)
  Receive Date: 20201118
  Receipt Date: 20220124
  Transmission Date: 20220423
  Serious: Yes (Other)
  Sender: FDA-Public Use
  Company Number: US-SAARTEMIS-SAC202011120634

PATIENT
  Age: 61 Year
  Sex: Male

DRUGS (1)
  1. ZANTAC [Suspect]
     Active Substance: RANITIDINE HYDROCHLORIDE
     Indication: Dyspepsia
     Dosage: 150 MG, QD
     Dates: start: 200501, end: 201801

REACTIONS (2)
  - Non-Hodgkin^s lymphoma [Unknown]
  - Haematological malignancy [Unknown]

NARRATIVE: CASE EVENT DATE: 20170901
